FAERS Safety Report 8017620-8 (Version None)
Quarter: 2012Q1

REPORT INFORMATION
  Report Type: 
  Country: None (occurrence: None)
  Receive Date: 20120103
  Receipt Date: 20111223
  Transmission Date: 20120608
  Serious: Yes (Hospitalization)
  Sender: FDA-Public Use
  Company Number: US-BAYER-201039593NA

PATIENT
  Age: 29 Year
  Sex: Female

DRUGS (2)
  1. YASMIN [Suspect]
     Indication: CONTRACEPTION
     Route: 048
     Dates: start: 20041201, end: 20070901
  2. IBUPROFEN (ADVIL) [Concomitant]
     Dosage: UNK
     Dates: start: 20070901

REACTIONS (2)
  - THROMBOSIS [None]
  - PULMONARY EMBOLISM [None]
